FAERS Safety Report 6580305-9 (Version None)
Quarter: 2010Q1

REPORT INFORMATION
  Report Type: 
  Country: None (occurrence: None)
  Receive Date: 20100212
  Receipt Date: 20100105
  Transmission Date: 20100710
  Serious: No
  Sender: FDA-Public Use
  Company Number: US-ALLERGAN-0914760US

PATIENT
  Age: 67 Year
  Sex: Male
  Weight: 108.84 kg

DRUGS (7)
  1. COMBIGAN [Suspect]
     Indication: INTRAOCULAR PRESSURE INCREASED
     Dosage: 1 GTT, BID
     Route: 047
     Dates: start: 20070101
  2. XALATAN [Suspect]
     Indication: INTRAOCULAR PRESSURE INCREASED
     Dosage: 1 GTT, QPM
     Route: 047
  3. POTADAY [Concomitant]
     Indication: DRUG USE FOR UNKNOWN INDICATION
  4. TRAVATAN [Concomitant]
  5. FALCON [Concomitant]
  6. SYSTANE [Concomitant]
  7. XIBROM [Concomitant]

REACTIONS (2)
  - EYE PAIN [None]
  - EYE SWELLING [None]
